FAERS Safety Report 18467184 (Version 1)
Quarter: 2020Q4

REPORT INFORMATION
  Report Type: Spontaneous
  Country: BR (occurrence: BR)
  Receive Date: 20201105
  Receipt Date: 20201105
  Transmission Date: 20210114
  Serious: Yes (Other)
  Sender: FDA-Public Use
  Company Number: BR-ROCHE-2707441

PATIENT
  Age: 32 Year
  Sex: Male

DRUGS (1)
  1. RANIBIZUMAB. [Suspect]
     Active Substance: RANIBIZUMAB
     Indication: DIABETIC RETINOPATHY
     Dosage: UNK
     Route: 065

REACTIONS (4)
  - Vitreous haemorrhage [Unknown]
  - Visual acuity reduced [Unknown]
  - Diabetic retinopathy [Unknown]
  - Vitreous opacities [Unknown]

NARRATIVE: CASE EVENT DATE: 202010
